FAERS Safety Report 6820187-0 (Version None)
Quarter: 2010Q3

REPORT INFORMATION
  Report Type: 
  Country: None (occurrence: None)
  Receive Date: 20100707
  Receipt Date: 20100625
  Transmission Date: 20110219
  Serious: Yes (Other)
  Sender: FDA-Public Use
  Company Number: GB-MERCK-1006GBR00126

PATIENT
  Age: 82 Year
  Sex: Female

DRUGS (6)
  1. PRINIVIL [Suspect]
     Route: 048
  2. PRINIVIL [Suspect]
     Route: 048
  3. BISOPROLOL [Suspect]
     Route: 065
  4. AMILORIDE HYDROCHLORIDE AND FUROSEMIDE [Suspect]
     Route: 065
  5. ASPIRIN [Concomitant]
     Route: 065
  6. FLUDROCORTISONE [Concomitant]
     Route: 065

REACTIONS (4)
  - DIZZINESS [None]
  - FALL [None]
  - HYPOTENSION [None]
  - SYNCOPE [None]
